FAERS Safety Report 15470764 (Version 1)
Quarter: 2018Q4

REPORT INFORMATION
  Report Type: Spontaneous
  Country: ES (occurrence: ES)
  Receive Date: 20181005
  Receipt Date: 20181005
  Transmission Date: 20190205
  Serious: Yes (Hospitalization)
  Sender: FDA-Public Use
  Company Number: ES-OTSUKA-2018_032415

PATIENT
  Age: 67 Year
  Sex: Male

DRUGS (5)
  1. ABILIFY [Suspect]
     Active Substance: ARIPIPRAZOLE
     Indication: SCHIZOPHRENIA
     Dosage: 20 MG, QD
     Route: 048
     Dates: start: 20180801, end: 20180920
  2. QUETIAPINA [Concomitant]
     Active Substance: QUETIAPINE
     Indication: SCHIZOAFFECTIVE DISORDER
     Dosage: 1 DF, QOD
     Route: 048
     Dates: start: 20180828
  3. FINASTERIDA [Concomitant]
     Indication: BENIGN PROSTATIC HYPERPLASIA
     Dosage: 1 DF, QD
     Route: 048
     Dates: start: 20170517
  4. PSICOTRIC [Concomitant]
     Active Substance: QUETIAPINE FUMARATE
     Indication: SCHIZOAFFECTIVE DISORDER
     Dosage: 1 DF, QOD
     Route: 048
     Dates: start: 20180804
  5. VALPROATO SODIO [Concomitant]
     Active Substance: VALPROATE SODIUM
     Indication: SCHIZOPHRENIA
     Dosage: 1500 MG, QD
     Route: 048
     Dates: start: 20081006

REACTIONS (3)
  - Hyponatraemia [Recovering/Resolving]
  - Incorrect dose administered [Unknown]
  - Inappropriate antidiuretic hormone secretion [Recovering/Resolving]

NARRATIVE: CASE EVENT DATE: 20180801
